FAERS Safety Report 8149224 (Version 2)
Quarter: 2012Q4

REPORT INFORMATION
  Report Type: 
  Country: US (occurrence: US)
  Receive Date: 20110922
  Receipt Date: 20121023
  Transmission Date: 20130627
  Serious: No
  Sender: FDA-Public Use
  Company Number: US-ASTRAZENECA-2011SE21337

PATIENT
  Age: 42 Year
  Sex: Male
  Weight: 70.3 kg

DRUGS (12)
  1. SEROQUEL XR [Suspect]
     Indication: BIPOLAR DISORDER
     Route: 048
     Dates: start: 2010, end: 201203
  2. SEROQUEL XR [Suspect]
     Indication: BIPOLAR DISORDER
     Route: 048
     Dates: start: 201203, end: 2012
  3. SEROQUEL XR [Suspect]
     Indication: BIPOLAR DISORDER
     Route: 048
  4. CLONAZEPAM [Concomitant]
     Indication: ANXIETY
  5. TRAMADOL HCL [Concomitant]
     Indication: PAIN
     Route: 048
     Dates: start: 20121009
  6. HYDROCODONE-ACETAMIPNOPHEN [Concomitant]
     Indication: PAIN
     Dosage: 7.5/500 MG, TWO TIMES A DAY
     Route: 048
     Dates: start: 20121009
  7. DEPAKOTE ER [Concomitant]
     Indication: BIPOLAR DISORDER
     Route: 048
  8. KLONOPIN [Concomitant]
     Indication: BIPOLAR DISORDER
     Route: 048
  9. PREDNISONE [Concomitant]
     Indication: PAIN
     Route: 048
     Dates: start: 20121009
  10. PREDNISONE [Concomitant]
     Indication: PAIN
     Route: 048
     Dates: start: 20121009
  11. PREDNISONE [Concomitant]
     Indication: PAIN
     Route: 048
     Dates: start: 20121009
  12. PREDNISONE [Concomitant]
     Indication: PAIN
     Route: 048
     Dates: start: 20121009

REACTIONS (11)
  - Abdominal pain [Not Recovered/Not Resolved]
  - Feeling drunk [Recovered/Resolved]
  - Feeling abnormal [Recovered/Resolved]
  - Muscular weakness [Recovered/Resolved]
  - Feeling abnormal [Unknown]
  - Pain [Unknown]
  - Nephrolithiasis [Unknown]
  - Weight increased [Not Recovered/Not Resolved]
  - Fatigue [Unknown]
  - Somnolence [Unknown]
  - Intentional drug misuse [Unknown]
